FAERS Safety Report 14447022 (Version 1)
Quarter: 2018Q1

REPORT INFORMATION
  Report Type: Spontaneous
  Country: US (occurrence: US)
  Receive Date: 20180126
  Receipt Date: 20180126
  Transmission Date: 20180509
  Serious: Yes (Disabling)
  Sender: FDA-Public Use
  Company Number: None

PATIENT
  Age: 29 Year
  Sex: Female
  Weight: 52.2 kg

DRUGS (6)
  1. HYALURONIC ACID [Concomitant]
     Active Substance: HYALURONIC ACID
  2. REISHI [Concomitant]
     Active Substance: REISHI
  3. PLANT COLLAGEN [Concomitant]
  4. CUTIVATE [Suspect]
     Active Substance: FLUTICASONE PROPIONATE
     Indication: ECZEMA
     Route: 061
     Dates: start: 20160912, end: 20171231
  5. HYDROCORTISONE CREAM [Suspect]
     Active Substance: HYDROCORTISONE
     Indication: ECZEMA
     Route: 061
     Dates: start: 20170214, end: 20170518
  6. TURMERIC [Concomitant]
     Active Substance: HERBALS\TURMERIC

REACTIONS (5)
  - Skin exfoliation [None]
  - Psychiatric symptom [None]
  - Withdrawal syndrome [None]
  - Swelling face [None]
  - Rash [None]

NARRATIVE: CASE EVENT DATE: 20170101
